FAERS Safety Report 24434205 (Version 1)
Quarter: 2024Q4

REPORT INFORMATION
  Report Type: Spontaneous
  Country: BE (occurrence: BE)
  Receive Date: 20241014
  Receipt Date: 20241014
  Transmission Date: 20250115
  Serious: Yes (Death, Life-Threatening, Hospitalization, Other)
  Sender: FRESENIUS KABI
  Company Number: None

PATIENT
  Age: 64 Year
  Sex: Male
  Weight: 77 kg

DRUGS (14)
  1. PIPERACILLIN SODIUM\TAZOBACTAM SODIUM [Suspect]
     Active Substance: PIPERACILLIN SODIUM\TAZOBACTAM SODIUM
     Indication: Product used for unknown indication
     Route: 042
     Dates: start: 20240815, end: 20240822
  2. ENOXAPARIN SODIUM [Concomitant]
     Active Substance: ENOXAPARIN SODIUM
     Indication: Product used for unknown indication
  3. BISOPROLOL [Concomitant]
     Active Substance: BISOPROLOL\BISOPROLOL FUMARATE
     Indication: Product used for unknown indication
  4. Duovent HFA 0,020 mg/0,050 mg Aerosol, oplossing [Concomitant]
     Indication: Product used for unknown indication
  5. Tradonal Retard 50 mg, sustained-release capsules [Concomitant]
     Indication: Product used for unknown indication
  6. SPIRONOLACTONE EG 25 MG [Concomitant]
     Indication: Product used for unknown indication
  7. OPDIVO [Concomitant]
     Active Substance: NIVOLUMAB
     Indication: Product used for unknown indication
  8. DAFALGAN [Concomitant]
     Active Substance: ACETAMINOPHEN
     Indication: Product used for unknown indication
  9. PACLITAXEL [Concomitant]
     Active Substance: PACLITAXEL
     Indication: Product used for unknown indication
  10. Asaflow 80 mg, gastro-resistant tablets [Concomitant]
     Indication: Product used for unknown indication
  11. Mini-Plasco 7,45% [Concomitant]
     Indication: Product used for unknown indication
  12. CARBOPLATIN [Concomitant]
     Active Substance: CARBOPLATIN
     Indication: Product used for unknown indication
  13. YERVOY [Concomitant]
     Active Substance: IPILIMUMAB
     Indication: Product used for unknown indication
  14. COVERSYL PLUS 5 MG/1.25 MG [Concomitant]
     Indication: Product used for unknown indication

REACTIONS (4)
  - Stevens-Johnson syndrome [Fatal]
  - Toxic skin eruption [Fatal]
  - Cardiac failure acute [Fatal]
  - Myocarditis [Fatal]

NARRATIVE: CASE EVENT DATE: 20240821
